FAERS Safety Report 23457297 (Version 1)
Quarter: 2024Q1

REPORT INFORMATION
  Report Type: Spontaneous
  Country: US (occurrence: US)
  Receive Date: 20240130
  Receipt Date: 20240130
  Transmission Date: 20240409
  Serious: No
  Sender: FDA-Public Use
  Company Number: US-MYLANLABS-2023M1137818

PATIENT
  Sex: Female
  Weight: 49.9 kg

DRUGS (1)
  1. WIXELA INHUB [Suspect]
     Active Substance: FLUTICASONE PROPIONATE\SALMETEROL XINAFOATE
     Indication: Product used for unknown indication
     Dosage: 250 MICROGRAM
     Route: 048

REACTIONS (4)
  - Incorrect dose administered by product [Unknown]
  - Product taste abnormal [Unknown]
  - Device failure [Unknown]
  - Product quality issue [Unknown]
